FAERS Safety Report 17206318 (Version 1)
Quarter: 2019Q4

REPORT INFORMATION
  Report Type: Report from Study
  Country: ES (occurrence: ES)
  Receive Date: 20191227
  Receipt Date: 20191227
  Transmission Date: 20200122
  Serious: Yes (Other)
  Sender: FDA-Public Use
  Company Number: ES-TEVA-2019-ES-1157431

PATIENT
  Age: 88 Year
  Sex: Female

DRUGS (7)
  1. SEGURIL 40 MG COMPRIMIDOS [Concomitant]
     Active Substance: FUROSEMIDE
  2. ALDACTONE [Suspect]
     Active Substance: SPIRONOLACTONE
     Indication: CARDIAC FAILURE
     Dosage: 15 MILLIGRAM DAILY;
     Route: 048
     Dates: start: 20141204, end: 20180314
  3. CARDYL 20 MG COMPRIMIDOS RECUBIERTOS CON PELICULA [Concomitant]
  4. ENALAPRIL 5 MG 60 COMPRIMIDOS [Suspect]
     Active Substance: ENALAPRIL
     Indication: CARDIAC FAILURE
     Dosage: 5 MILLIGRAM DAILY;
     Route: 048
     Dates: start: 20141204
  5. PARACETAMOL (12A) [Concomitant]
     Active Substance: ACETAMINOPHEN
  6. CLEXANE [Concomitant]
     Active Substance: ENOXAPARIN SODIUM
  7. EMCONCOR COR  2,5 MG COMPRIMIDOS RECUBIERTOS CON PELICULA [Concomitant]

REACTIONS (2)
  - Hyperkalaemia [Recovering/Resolving]
  - Hyponatraemia [Recovering/Resolving]

NARRATIVE: CASE EVENT DATE: 2018
